FAERS Safety Report 24867730 (Version 2)
Quarter: 2025Q1

REPORT INFORMATION
  Report Type: Report from Study
  Country: CA (occurrence: CA)
  Receive Date: 20250121
  Receipt Date: 20250131
  Transmission Date: 20250408
  Serious: Yes (Other)
  Sender: TAKEDA
  Company Number: CA-TAKEDA-2025TUS004457

PATIENT
  Sex: Male

DRUGS (7)
  1. VEDOLIZUMAB [Suspect]
     Active Substance: VEDOLIZUMAB
     Indication: Colitis ulcerative
  2. VEDOLIZUMAB [Suspect]
     Active Substance: VEDOLIZUMAB
  3. PREDNISONE [Concomitant]
     Active Substance: PREDNISONE
  4. ASPIRIN [Concomitant]
     Active Substance: ASPIRIN
  5. VALSARTAN [Concomitant]
     Active Substance: VALSARTAN
  6. BISOPROLOL FUMARATE [Concomitant]
     Active Substance: BISOPROLOL FUMARATE
  7. LYRICA [Concomitant]
     Active Substance: PREGABALIN

REACTIONS (5)
  - Haematochezia [Unknown]
  - Rectal discharge [Unknown]
  - Diarrhoea [Recovering/Resolving]
  - Anal incontinence [Unknown]
  - Flatulence [Recovering/Resolving]

NARRATIVE: CASE EVENT DATE: 20240101
